FAERS Safety Report 9738863 (Version 2)
Quarter: 2013Q4

REPORT INFORMATION
  Report Type: Spontaneous
  Country: SE (occurrence: SE)
  Receive Date: 20131209
  Receipt Date: 20131226
  Transmission Date: 20140711
  Serious: Yes (Other)
  Sender: FDA-Public Use
  Company Number: SE-ROCHE-1315784

PATIENT
  Age: 27 Year
  Sex: Female

DRUGS (2)
  1. LUCENTIS [Suspect]
     Indication: RETINAL VEIN THROMBOSIS
     Dosage: TOTAL 6 INJECTIONS WERE RECIEVED DURING THE PERIOD OF 06/NOV/2012 - 25/NOV/2013
     Route: 050
     Dates: start: 20121106, end: 20131125
  2. LUCENTIS [Suspect]
     Indication: RETINAL VEIN OCCLUSION

REACTIONS (2)
  - Abortion spontaneous [Unknown]
  - Maternal exposure during pregnancy [Unknown]
